FAERS Safety Report 19826206 (Version 1)
Quarter: 2021Q3

REPORT INFORMATION
  Report Type: Spontaneous
  Country: US (occurrence: US)
  Receive Date: 20210910
  Receipt Date: 20210910
  Transmission Date: 20211014
  Serious: No
  Sender: FDA-Public Use
  Company Number: None

PATIENT
  Age: 92 Year
  Sex: Male
  Weight: 65.77 kg

DRUGS (1)
  1. WARFARIN (WARFARIN NA (GOLDEN STATE) 2MG TAB) [Suspect]
     Active Substance: WARFARIN SODIUM
     Indication: ANTICOAGULANT THERAPY
     Dates: start: 20040311, end: 20210901

REACTIONS (4)
  - International normalised ratio increased [None]
  - Haematochezia [None]
  - Gastric haemorrhage [None]
  - Blood urine present [None]

NARRATIVE: CASE EVENT DATE: 20210903
